FAERS Safety Report 5140444-6 (Version None)
Quarter: 2006Q4

REPORT INFORMATION
  Report Type: 
  Country: None (occurrence: None)
  Receive Date: 20061025
  Receipt Date: 20061009
  Transmission Date: 20070319
  Serious: Yes (Hospitalization)
  Sender: FDA-Public Use
  Company Number: 230372

PATIENT
  Age: 68 Year
  Sex: Male

DRUGS (11)
  1. RANIBIZUMAB(RANIBIZUMAB) PWDR + SOLVENT, INJECTION SOLN [Suspect]
     Indication: MACULAR DEGENERATION
     Dosage: 500 AUG, QD, INTRAVITREAL
     Dates: start: 20060627
  2. IMIDAPRIL HYDROCHLORIDE (IMIDAPRIL) [Concomitant]
  3. ACTOS [Concomitant]
  4. EBASTEL (EBASTINE) [Concomitant]
  5. DEXAN (DEXAMETHASONE) [Concomitant]
  6. MENTAX (BUTENAFINE HYDROCHLORIDE) [Concomitant]
  7. LEVOFLOXACIN [Concomitant]
  8. TARIVID (OFLOXACIN) [Concomitant]
  9. CEFZON (CERDINIR) [Concomitant]
  10. FAMOTIDINE [Concomitant]
  11. GLYCEROL (GLYCERIN) [Concomitant]

REACTIONS (3)
  - CEREBRAL HAEMORRHAGE [None]
  - FALL [None]
  - HYPERTENSION [None]
